FAERS Safety Report 12137426 (Version 1)
Quarter: 2016Q1

REPORT INFORMATION
  Report Type: Spontaneous
  Country: US (occurrence: US)
  Receive Date: 20160302
  Receipt Date: 20160302
  Transmission Date: 20160526
  Serious: Yes (Other)
  Sender: FDA-Public Use
  Company Number: US-ACTAVIS-2015-18592

PATIENT
  Sex: Female

DRUGS (2)
  1. TAMOXIFEN CITRATE (ACTAVIS LABORATORIES FL) [Suspect]
     Active Substance: TAMOXIFEN CITRATE
     Indication: BREAST CANCER STAGE II
     Dosage: UNK, UNKNOWN
     Route: 065
     Dates: start: 201411, end: 201503
  2. TAMOXIFEN CITRATE (ACTAVIS LABORATORIES FL) [Suspect]
     Active Substance: TAMOXIFEN CITRATE
     Indication: BREAST CANCER METASTATIC
     Dosage: UNKNOWN
     Route: 065
     Dates: end: 200511

REACTIONS (1)
  - Malignant neoplasm progression [Unknown]
